FAERS Safety Report 15411320 (Version 1)
Quarter: 2018Q3

REPORT INFORMATION
  Report Type: Spontaneous
  Country: US (occurrence: US)
  Receive Date: 20180920
  Receipt Date: 20180920
  Transmission Date: 20181010
  Serious: No
  Sender: FDA-Public Use
  Company Number: None

PATIENT
  Sex: Female

DRUGS (9)
  1. IBUPROFEN. [Concomitant]
     Active Substance: IBUPROFEN
  2. ADVIL [Concomitant]
     Active Substance: IBUPROFEN
  3. TRAMADOL. [Concomitant]
     Active Substance: TRAMADOL
  4. REMICADE [Concomitant]
     Active Substance: INFLIXIMAB
  5. EXCEDRIN [Concomitant]
     Active Substance: ACETAMINOPHEN\ASPIRIN\CAFFEINE
  6. OCALIVA [Suspect]
     Active Substance: OBETICHOLIC ACID
     Indication: PRIMARY BILIARY CHOLANGITIS
     Route: 048
     Dates: start: 20170609
  7. DEXILANT [Concomitant]
     Active Substance: DEXLANSOPRAZOLE
  8. NALTREXONE [Concomitant]
     Active Substance: NALTREXONE
  9. EVAMIST [Concomitant]
     Active Substance: ESTRADIOL

REACTIONS (3)
  - Chest pain [None]
  - Gastrooesophageal reflux disease [None]
  - Dyspepsia [None]
